FAERS Safety Report 12721926 (Version 1)
Quarter: 2016Q3

REPORT INFORMATION
  Report Type: Spontaneous
  Country: JP (occurrence: JP)
  Receive Date: 20160907
  Receipt Date: 20160907
  Transmission Date: 20161109
  Serious: Yes (Hospitalization, Other)
  Sender: FDA-Public Use
  Company Number: JP-TAKEDA-2016TUS015823

PATIENT
  Age: 78 Year
  Sex: Male
  Weight: 72.7 kg

DRUGS (5)
  1. FEBURIC [Suspect]
     Active Substance: FEBUXOSTAT
     Indication: HYPERURICAEMIA
     Dosage: UNK
     Route: 048
  2. OLMETEC [Concomitant]
     Active Substance: OLMESARTAN MEDOXOMIL
     Dosage: 20 MG, QD
     Route: 048
     Dates: start: 2011
  3. ZETIA [Concomitant]
     Active Substance: EZETIMIBE
     Dosage: 10 MG, QD
     Route: 048
     Dates: start: 2011
  4. ALLELOCK [Concomitant]
     Active Substance: OLOPATADINE HYDROCHLORIDE
     Dosage: 10 MG, BID
     Route: 048
     Dates: start: 2013
  5. CRESTOR [Concomitant]
     Active Substance: ROSUVASTATIN CALCIUM
     Dosage: 5 MG, QD
     Route: 048
     Dates: start: 2011

REACTIONS (3)
  - Gastric cancer [Recovered/Resolved]
  - Miliaria [Recovering/Resolving]
  - Vertigo [Unknown]

NARRATIVE: CASE EVENT DATE: 20130706
